FAERS Safety Report 14410485 (Version 1)
Quarter: 2018Q1

REPORT INFORMATION
  Report Type: Spontaneous
  Country: US (occurrence: US)
  Receive Date: 20180119
  Receipt Date: 20180119
  Transmission Date: 20180509
  Serious: No
  Sender: FDA-Public Use
  Company Number: US-PFIZER INC-2018022924

PATIENT
  Age: 27 Year
  Sex: Female

DRUGS (4)
  1. CORTEF [Suspect]
     Active Substance: HYDROCORTISONE
     Dosage: 10 MG, DAILY
  2. CORTEF [Suspect]
     Active Substance: HYDROCORTISONE
     Dosage: 12.5 MG, DAILY
  3. CORTEF [Suspect]
     Active Substance: HYDROCORTISONE
     Dosage: 15 MG, DAILY
  4. CORTEF [Suspect]
     Active Substance: HYDROCORTISONE
     Dosage: 15 MG, DAILY

REACTIONS (2)
  - Weight increased [Unknown]
  - Weight decreased [Unknown]
